FAERS Safety Report 23287528 (Version 1)
Quarter: 2023Q4

REPORT INFORMATION
  Report Type: Report from Study
  Country: CR (occurrence: None)
  Receive Date: 20231212
  Receipt Date: 20231212
  Transmission Date: 20240109
  Serious: Yes (Other)
  Sender: FDA-Public Use
  Company Number: 2023A280199

PATIENT
  Sex: Male

DRUGS (1)
  1. BREZTRI [Suspect]
     Active Substance: BUDESONIDE\FORMOTEROL\GLYCOPYRROLATE
     Indication: Oxygen therapy
     Dosage: 160.0UG/INHAL UNKNOWN
     Route: 055

REACTIONS (4)
  - Hypoxia [Unknown]
  - Blood uric acid increased [Unknown]
  - Asthenia [Unknown]
  - Off label use [Unknown]
